FAERS Safety Report 4327472-5 (Version None)
Quarter: 2004Q1

REPORT INFORMATION
  Report Type: 
  Country: None (occurrence: None)
  Receive Date: 20040325
  Receipt Date: 20040310
  Transmission Date: 20041129
  Serious: Yes (Other)
  Sender: FDA-Public Use
  Company Number: J200401104

PATIENT
  Age: 76 Year
  Sex: Female

DRUGS (3)
  1. MYSLEE - (ZOLPIDEM) - TABLET - 10MG [Suspect]
     Indication: INSOMNIA
     Dosage: 10 MG PO
     Route: 048
     Dates: start: 20030407, end: 20030427
  2. SILECE (FLUNITRAZEPAM) [Concomitant]
  3. LAXOBERON(SODIUM PICO SULFATE) [Concomitant]

REACTIONS (11)
  - ASPARTATE AMINOTRANSFERASE INCREASED [None]
  - BLOOD ALKALINE PHOSPHATASE INCREASED [None]
  - BLOOD CHLORIDE DECREASED [None]
  - BLOOD LACTATE DEHYDROGENASE INCREASED [None]
  - BLOOD POTASSIUM DECREASED [None]
  - HAEMATOCRIT DECREASED [None]
  - HAEMOGLOBIN DECREASED [None]
  - PNEUMONIA ASPIRATION [None]
  - PYREXIA [None]
  - RED BLOOD CELL COUNT DECREASED [None]
  - UROBILIN URINE PRESENT [None]
